FAERS Safety Report 5140788-8 (Version None)
Quarter: 2006Q4

REPORT INFORMATION
  Report Type: 
  Country: None (occurrence: None)
  Receive Date: 20061024
  Receipt Date: 20061011
  Transmission Date: 20070319
  Serious: Yes (Death, Other)
  Sender: FDA-Public Use
  Company Number: DE200610002423

PATIENT
  Age: 69 Year
  Sex: Female

DRUGS (3)
  1. XIGRIS [Suspect]
     Indication: INFECTION
     Dosage: 24, INTRAVENOUS
     Route: 042
     Dates: start: 20061009
  2. VANCOMYCIN [Concomitant]
  3. TAZOBAC                      (PIPERACILLIN SODIUM, TAZOBACTAM SODIUM) [Concomitant]

REACTIONS (6)
  - CARDIAC ARREST [None]
  - CARDIOMYOPATHY [None]
  - PULMONARY VASCULAR DISORDER [None]
  - RENAL FAILURE [None]
  - SHOCK [None]
  - THROMBOCYTOPENIA [None]
